FAERS Safety Report 10166394 (Version 4)
Quarter: 2015Q1

REPORT INFORMATION
  Report Type: Spontaneous
  Country: FR (occurrence: FR)
  Receive Date: 20140512
  Receipt Date: 20150321
  Transmission Date: 20150720
  Serious: Yes (Hospitalization, Other)
  Sender: FDA-Public Use
  Company Number: FR-AMGEN-FRASP2014031118

PATIENT
  Age: 84 Year
  Sex: Male

DRUGS (14)
  1. FUROSEMIDE. [Concomitant]
     Active Substance: FUROSEMIDE
  2. PIASCLEDINE                        /01305801/ [Concomitant]
  3. VITAMIN D                          /00107901/ [Concomitant]
     Active Substance: ERGOCALCIFEROL
  4. TAHOR [Concomitant]
     Active Substance: ATORVASTATIN CALCIUM
  5. PROLIA [Suspect]
     Active Substance: DENOSUMAB
     Indication: OSTEITIS DEFORMANS
     Dosage: UNK
     Route: 058
     Dates: start: 20140325
  6. UVEDOSE [Concomitant]
     Active Substance: CHOLECALCIFEROL
  7. INEXIUM                            /01479302/ [Concomitant]
     Active Substance: ESOMEPRAZOLE MAGNESIUM
  8. ASPEGIC [Concomitant]
     Active Substance: ASPIRIN DL-LYSINE
  9. SODIUM BICARBONATE. [Concomitant]
     Active Substance: SODIUM BICARBONATE
  10. IKOREL [Concomitant]
     Active Substance: NICORANDIL
  11. CALCIUM [Concomitant]
     Active Substance: CALCIUM
  12. FOSRENOL [Concomitant]
     Active Substance: LANTHANUM CARBONATE
  13. FUMARATE DISODIUM [Concomitant]
  14. BISOPROLOL [Concomitant]
     Active Substance: BISOPROLOL

REACTIONS (3)
  - Dialysis [Unknown]
  - Bone pain [Recovering/Resolving]
  - Hypocalcaemia [Recovered/Resolved]

NARRATIVE: CASE EVENT DATE: 20140420
